FAERS Safety Report 7655193-X (Version None)
Quarter: 2011Q3

REPORT INFORMATION
  Report Type: 
  Country: None (occurrence: None)
  Receive Date: 20110728
  Receipt Date: 20110721
  Transmission Date: 20111222
  Serious: Yes (Life-Threatening, Hospitalization, Other)
  Sender: FDA-Public Use
  Company Number: 2009-198042-NL

PATIENT
  Age: 22 Year
  Sex: Female
  Weight: 72.5755 kg

DRUGS (3)
  1. NUVARING [Suspect]
     Indication: CONTRACEPTION
     Dosage: 1 DF, QM, VAG
     Route: 067
     Dates: start: 20060826, end: 20070626
  2. CHLOROQUINE [Concomitant]
  3. IBUPROFEN [Concomitant]

REACTIONS (13)
  - VARICOSE VEIN [None]
  - ABDOMINAL PAIN [None]
  - FACTOR V LEIDEN MUTATION [None]
  - NERVOUSNESS [None]
  - IN-STENT ARTERIAL RESTENOSIS [None]
  - DEEP VEIN THROMBOSIS [None]
  - PULMONARY EMBOLISM [None]
  - HYPERCOAGULATION [None]
  - ABDOMINAL DISCOMFORT [None]
  - UNEVALUABLE EVENT [None]
  - TELANGIECTASIA [None]
  - OEDEMA PERIPHERAL [None]
  - VAGINITIS CHLAMYDIAL [None]
